FAERS Safety Report 6485634-5 (Version None)
Quarter: 2009Q4

REPORT INFORMATION
  Report Type: 
  Country: None (occurrence: None)
  Receive Date: 20091209
  Receipt Date: 20090702
  Transmission Date: 20100525
  Serious: No
  Sender: FDA-Public Use
  Company Number: US-AMGEN-KDL354101

PATIENT
  Sex: Female

DRUGS (3)
  1. ENBREL [Suspect]
     Indication: RHEUMATOID ARTHRITIS
     Route: 058
     Dates: start: 20090301
  2. PLAQUENIL [Concomitant]
     Route: 048
  3. LEFLUNOMIDE [Concomitant]
     Route: 048

REACTIONS (7)
  - ALOPECIA [None]
  - ASTHENIA [None]
  - FATIGUE [None]
  - JOINT SWELLING [None]
  - JOINT WARMTH [None]
  - MUSCULOSKELETAL STIFFNESS [None]
  - PARAESTHESIA [None]
